FAERS Safety Report 24209852 (Version 2)
Quarter: 2024Q3

REPORT INFORMATION
  Report Type: Spontaneous
  Country: GB (occurrence: GB)
  Receive Date: 20240814
  Receipt Date: 20240916
  Transmission Date: 20241016
  Serious: Yes (Other)
  Sender: TORRENT
  Company Number: None

PATIENT
  Sex: Female

DRUGS (1)
  1. LAMOTRIGINE [Suspect]
     Active Substance: LAMOTRIGINE
     Indication: Product used for unknown indication
     Dosage: LAMOTRIGINE 25 MG
     Route: 065

REACTIONS (16)
  - Eyelid disorder [Unknown]
  - Schizophrenia [Unknown]
  - Respiratory disorder [Unknown]
  - Dizziness [Unknown]
  - Fatigue [Unknown]
  - Eye pruritus [Unknown]
  - Eye movement disorder [Unknown]
  - Muscle spasms [Unknown]
  - Crying [Unknown]
  - Headache [Unknown]
  - Dyskinesia [Unknown]
  - Cerebrovascular accident [Unknown]
  - Pruritus [Unknown]
  - Confusional state [Unknown]
  - Aggression [Unknown]
  - Deafness [Unknown]

NARRATIVE: CASE EVENT DATE: 20230501
